APPROVED DRUG PRODUCT: SOTYKTU
Active Ingredient: DEUCRAVACITINIB
Strength: 6MG
Dosage Form/Route: TABLET;ORAL
Application: N214958 | Product #001
Applicant: BRISTOL MYERS SQUIBB CO
Approved: Sep 9, 2022 | RLD: Yes | RS: Yes | Type: RX

PATENTS:
Patent 12521390 | Expires: Feb 11, 2043
Patent 11021475 | Expires: Nov 7, 2033
Patent RE47929 | Expires: Nov 7, 2033
Patent 10000480 | Expires: Nov 7, 2033

EXCLUSIVITY:
Code: NCE | Date: Sep 9, 2027